FAERS Safety Report 8710947 (Version 2)
Quarter: 2012Q4

REPORT INFORMATION
  Report Type: 
  Country: US (occurrence: US)
  Receive Date: 20120807
  Receipt Date: 20121010
  Transmission Date: 20130627
  Serious: No
  Sender: FDA-Public Use
  Company Number: US-009507513-1207USA009095

PATIENT
  Age: 49 Year
  Sex: Female
  Weight: 79.37 kg

DRUGS (6)
  1. VICTRELIS [Suspect]
     Indication: HEPATITIS C
     Dosage: UNK
  2. XANAX [Concomitant]
     Dosage: UNK UNK, hs
  3. VITAMIN D (UNSPECIFIED) [Concomitant]
     Dosage: 1000 mg, UNK
     Route: 048
  4. VENTOLIN (ALBUTEROL SULFATE) [Concomitant]
     Indication: ASTHMA
     Route: 048
  5. FLEXERIL [Concomitant]
     Dosage: 10 mg, UNK
  6. LISINOPRIL [Concomitant]
     Dosage: 10 mg, UNK

REACTIONS (4)
  - Disease recurrence [Unknown]
  - Dyspnoea [Recovered/Resolved]
  - Lung disorder [Recovered/Resolved]
  - Hepatitis C [None]
